FAERS Safety Report 7443639-1 (Version None)
Quarter: 2011Q2

REPORT INFORMATION
  Report Type: 
  Country: None (occurrence: None)
  Receive Date: 20110428
  Receipt Date: 20110426
  Transmission Date: 20111010
  Serious: Yes (Death, Other)
  Sender: FDA-Public Use
  Company Number: GB-PFIZER INC-2011087579

PATIENT
  Sex: Male

DRUGS (2)
  1. CHAMPIX [Suspect]
     Dosage: UNK
     Dates: start: 20100101
  2. CHAMPIX [Suspect]
     Indication: SMOKING CESSATION THERAPY
     Dosage: UNK
     Dates: start: 20090501, end: 20101201

REACTIONS (9)
  - COMPLETED SUICIDE [None]
  - NIGHTMARE [None]
  - SLEEP DISORDER [None]
  - FATIGUE [None]
  - PAIN [None]
  - TREMOR [None]
  - PARANOIA [None]
  - ABNORMAL BEHAVIOUR [None]
  - DELUSION [None]
